FAERS Safety Report 8255459-9 (Version None)
Quarter: 2012Q1

REPORT INFORMATION
  Report Type: 
  Country: None (occurrence: None)
  Receive Date: 20120322
  Receipt Date: 20120112
  Transmission Date: 20120608
  Serious: Yes (Hospitalization)
  Sender: FDA-Public Use
  Company Number: UTC-012851

PATIENT
  Age: 77 Year
  Sex: Male
  Weight: 60.8 kg

DRUGS (4)
  1. DILTIAZEM [Concomitant]
  2. TYVASO [Suspect]
     Indication: PULMONARY ARTERIAL HYPERTENSION
     Dosage: 18-54 MICROGRAMS (4 IN 1 D), INHALATION
     Route: 055
     Dates: start: 20111013, end: 20120111
  3. TYVASO [Suspect]
     Indication: PULMONARY HYPERTENSION
     Dosage: 18-54 MICROGRAMS (4 IN 1 D), INHALATION
     Route: 055
     Dates: start: 20111013, end: 20120111
  4. COUMADIN [Concomitant]

REACTIONS (3)
  - RENAL FAILURE ACUTE [None]
  - TRANSFUSION [None]
  - CARDIAC FAILURE CONGESTIVE [None]
